FAERS Safety Report 11972809 (Version 1)
Quarter: 2016Q1

REPORT INFORMATION
  Report Type: Spontaneous
  Country: US (occurrence: US)
  Receive Date: 20160128
  Receipt Date: 20160128
  Transmission Date: 20160526
  Serious: No
  Sender: FDA-Public Use
  Company Number: US-009507513-1601USA010760

PATIENT
  Age: 11 Year
  Sex: Female

DRUGS (4)
  1. PROSCAR [Suspect]
     Active Substance: FINASTERIDE
     Indication: HIDRADENITIS
     Dosage: ONE 4TH OF PILL A DAY
     Route: 048
     Dates: start: 20151216, end: 20160119
  2. PROSCAR [Suspect]
     Active Substance: FINASTERIDE
     Dosage: ONE HALF OF PILL A DAY
     Route: 048
     Dates: start: 20160120
  3. CORTES [Concomitant]
     Active Substance: HYDROCORTISONE ACETATE
  4. TYLENOL WITH CODEINE [Concomitant]
     Active Substance: ACETAMINOPHEN\CODEINE PHOSPHATE

REACTIONS (4)
  - Off label use [Unknown]
  - Drug administration error [Unknown]
  - Therapeutic response unexpected [Unknown]
  - Wrong technique in product usage process [Unknown]

NARRATIVE: CASE EVENT DATE: 20151216
